FAERS Safety Report 5260316-6 (Version None)
Quarter: 2007Q1

REPORT INFORMATION
  Report Type: 
  Country: None (occurrence: None)
  Receive Date: 20070309
  Receipt Date: 20060713
  Transmission Date: 20070707
  Serious: No
  Sender: FDA-Public Use
  Company Number: US-GLAXOSMITHKLINE-A0611536A

PATIENT
  Age: 42 Year
  Sex: Female

DRUGS (1)
  1. NICORETTE [Suspect]
     Dosage: 4MG UNKNOWN
     Route: 048

REACTIONS (1)
  - GINGIVAL PAIN [None]
